FAERS Safety Report 9884220 (Version 3)
Quarter: 2014Q3

REPORT INFORMATION
  Report Type: Spontaneous
  Country: GB (occurrence: GB)
  Receive Date: 20140210
  Receipt Date: 20140703
  Transmission Date: 20150326
  Serious: Yes (Death, Other)
  Sender: FDA-Public Use
  Company Number: GB-ELI_LILLY_AND_COMPANY-GB200602000937

PATIENT
  Age: 58 Year
  Sex: Male

DRUGS (2)
  1. THERAPEUTIC RADIOPHARMACEUTICALS [Concomitant]
     Active Substance: RADIATION THERAPY
     Indication: SQUAMOUS CELL CARCINOMA OF LUNG
     Dosage: 24 U, OTHER
  2. GEMCITABINE HYDROCHLORIDE. [Suspect]
     Active Substance: GEMCITABINE HYDROCHLORIDE
     Indication: SQUAMOUS CELL CARCINOMA OF LUNG
     Dosage: 1000 MG/M2, WEEKLY (1/W)

REACTIONS (3)
  - Neoplasm progression [Unknown]
  - Metastases to central nervous system [Fatal]
  - Recall phenomenon [Recovering/Resolving]
